FAERS Safety Report 4926922-0 (Version None)
Quarter: 2006Q1

REPORT INFORMATION
  Report Type: 
  Country: None (occurrence: None)
  Receive Date: 20060228
  Receipt Date: 20050912
  Transmission Date: 20060701
  Serious: No
  Sender: FDA-Public Use
  Company Number: US-GLAXOSMITHKLINE-A0573853A

PATIENT
  Age: 64 Year
  Sex: Female

DRUGS (14)
  1. LAMICTAL [Suspect]
     Indication: BIPOLAR DISORDER
     Dosage: 25MG PER DAY
     Route: 048
     Dates: start: 20050830
  2. AVAPRO [Concomitant]
  3. ATENOLOL [Concomitant]
  4. FUROSEMIDE [Concomitant]
  5. POTASSIUM CHLORIDE [Concomitant]
  6. SYNTHROID [Concomitant]
  7. PREMARIN [Concomitant]
  8. NEXIUM [Concomitant]
  9. PAROXETINE HCL [Concomitant]
  10. ZELNORM [Concomitant]
  11. TRAZODONE [Concomitant]
  12. CLONAZEPAM [Concomitant]
  13. RISPERDAL [Concomitant]
  14. NABUMETONE [Concomitant]

REACTIONS (2)
  - BRUXISM [None]
  - LOCAL SWELLING [None]
